FAERS Safety Report 19743366 (Version 1)
Quarter: 2021Q3

REPORT INFORMATION
  Report Type: Spontaneous
  Country: US (occurrence: US)
  Receive Date: 20210824
  Receipt Date: 20210824
  Transmission Date: 20211014
  Serious: No
  Sender: FDA-Public Use
  Company Number: US-ABBVIE-21K-163-3876522-00

PATIENT
  Age: 73 Year
  Sex: Female
  Weight: 77.18 kg

DRUGS (3)
  1. COVID?19 VACCINE [Concomitant]
     Indication: COVID-19 IMMUNISATION
     Dosage: MANUFACTURER PFIZER
     Route: 030
     Dates: start: 20210122, end: 20210122
  2. COVID?19 VACCINE [Concomitant]
     Dosage: MANUFACTURER PFIZER
     Route: 030
     Dates: start: 20210225, end: 20210225
  3. MAVYRET [Suspect]
     Active Substance: GLECAPREVIR\PIBRENTASVIR
     Indication: HEPATITIS C
     Route: 048
     Dates: start: 202103

REACTIONS (2)
  - Pruritus [Not Recovered/Not Resolved]
  - Rash macular [Not Recovered/Not Resolved]

NARRATIVE: CASE EVENT DATE: 202103
